FAERS Safety Report 6154118-6 (Version None)
Quarter: 2009Q2

REPORT INFORMATION
  Report Type: 
  Country: None (occurrence: None)
  Receive Date: 20090414
  Receipt Date: 20090407
  Transmission Date: 20091009
  Serious: Yes (Other)
  Sender: FDA-Public Use
  Company Number: US-BAYER-200911100BCC

PATIENT
  Age: 60 Year
  Sex: Female
  Weight: 72 kg

DRUGS (8)
  1. ALKA SELTZER PLUS MUCUS AND CONGESTION [Suspect]
     Indication: NASOPHARYNGITIS
     Dosage: 2 TABS TWICE DAILY OR 2 TABS EVERY 5 HOURS
     Route: 048
     Dates: start: 20090405, end: 20090407
  2. ASPIRIN [Suspect]
     Indication: DRUG USE FOR UNKNOWN INDICATION
  3. LISINOPRIL [Concomitant]
  4. HYDROCHLOROTHIAZIDE [Concomitant]
  5. PRILOSEC [Concomitant]
  6. VITAMIN A [Concomitant]
  7. VITAMIN E [Concomitant]
  8. BILBERRY [Concomitant]

REACTIONS (1)
  - HAEMATOCHEZIA [None]
